FAERS Safety Report 6915927 (Version 4)
Quarter: 2014Q1

REPORT INFORMATION
  Report Type: Spontaneous
  Country: US (occurrence: US)
  Receive Date: 20090223
  Receipt Date: 20140226
  Transmission Date: 20141002
  Serious: Yes (Other)
  Sender: FDA-Public Use
  Company Number: US-ASTRAZENECA-2009UW04683

PATIENT
  Age: 58 Year
  Sex: Male
  Weight: 88.5 kg

DRUGS (2)
  1. NEXIUM [Suspect]
     Route: 048
  2. TOPROL XL [Suspect]
     Indication: HYPERTENSION
     Route: 048

REACTIONS (17)
  - Fall [Unknown]
  - Musculoskeletal disorder [Recovering/Resolving]
  - Loss of consciousness [Unknown]
  - Dizziness [Unknown]
  - Hypertension [Unknown]
  - Hot flush [Recovered/Resolved]
  - Cold sweat [Recovered/Resolved]
  - Limb injury [Unknown]
  - Decreased appetite [Recovered/Resolved]
  - Contusion [Unknown]
  - Chest pain [Unknown]
  - Memory impairment [Unknown]
  - Insomnia [Unknown]
  - Depression [Recovered/Resolved]
  - Headache [Unknown]
  - Drug dose omission [Unknown]
  - Intentional drug misuse [Unknown]
